FAERS Safety Report 5372115-5 (Version None)
Quarter: 2007Q2

REPORT INFORMATION
  Report Type: 
  Country: None (occurrence: None)
  Receive Date: 20070627
  Receipt Date: 20070622
  Transmission Date: 20071010
  Serious: Yes (Life-Threatening)
  Sender: FDA-Public Use
  Company Number: DE-ASTRAZENECA-2007PK01246

PATIENT
  Age: 87 Year
  Sex: Male

DRUGS (3)
  1. SEROQUEL [Suspect]
     Route: 048
     Dates: start: 20070511, end: 20070530
  2. RISPERDAL [Suspect]
     Route: 048
     Dates: start: 20070511, end: 20070530
  3. AXURA [Suspect]
     Route: 048
     Dates: start: 20070511, end: 20070530

REACTIONS (1)
  - ATRIOVENTRICULAR BLOCK [None]
